FAERS Safety Report 26094503 (Version 1)
Quarter: 2025Q4

REPORT INFORMATION
  Report Type: Spontaneous
  Country: GB (occurrence: GB)
  Receive Date: 20251126
  Receipt Date: 20251126
  Transmission Date: 20260118
  Serious: Yes (Other)
  Sender: GLAXOSMITHKLINE
  Company Number: GB-GSK-GB2025150248

PATIENT
  Age: 44 Year
  Sex: Female

DRUGS (1)
  1. DOSTARLIMAB [Suspect]
     Active Substance: DOSTARLIMAB
     Indication: Endometrial adenocarcinoma
     Dosage: UNK

REACTIONS (3)
  - Retroperitoneal oedema [Recovered/Resolved]
  - Metastases to bone [Unknown]
  - Back pain [Unknown]

NARRATIVE: CASE EVENT DATE: 20231201
